FAERS Safety Report 5388578-5 (Version None)
Quarter: 2007Q3

REPORT INFORMATION
  Report Type: 
  Country: None (occurrence: None)
  Receive Date: 20070716
  Receipt Date: 20070706
  Transmission Date: 20080115
  Serious: Yes (Hospitalization)
  Sender: FDA-Public Use
  Company Number: IE-SANOFI-SYNTHELABO-A01200707593

PATIENT
  Sex: Male

DRUGS (2)
  1. ELIGARD [Suspect]
     Indication: PROSTATE CANCER
     Route: 058
     Dates: start: 20070301, end: 20070301
  2. ELIGARD [Suspect]
     Route: 058
     Dates: start: 20070601, end: 20070601

REACTIONS (1)
  - OEDEMA PERIPHERAL [None]
